FAERS Safety Report 6769663-X (Version None)
Quarter: 2010Q2

REPORT INFORMATION
  Report Type: 
  Country: None (occurrence: None)
  Receive Date: 20100615
  Receipt Date: 20100604
  Transmission Date: 20101027
  Serious: Yes (Hospitalization)
  Sender: FDA-Public Use
  Company Number: US-SANOFI-AVENTIS-2010SA032867

PATIENT
  Age: 73 Year
  Sex: Female
  Weight: 91.16 kg

DRUGS (1)
  1. PLAVIX [Suspect]
     Indication: ACUTE CORONARY SYNDROME
     Route: 048
     Dates: start: 20100308, end: 20100516

REACTIONS (1)
  - EROSIVE OESOPHAGITIS [None]
